FAERS Safety Report 12209894 (Version 3)
Quarter: 2016Q2

REPORT INFORMATION
  Report Type: Spontaneous
  Country: GB (occurrence: GB)
  Receive Date: 20160325
  Receipt Date: 20160415
  Transmission Date: 20160815
  Serious: Yes (Life-Threatening, Hospitalization)
  Sender: FDA-Public Use
  Company Number: GB-TEVA-645295ACC

PATIENT
  Age: 23 Year
  Sex: Female

DRUGS (10)
  1. LAMICTAL [Suspect]
     Active Substance: LAMOTRIGINE
     Indication: SEIZURE
     Dosage: 300 MILLIGRAM DAILY;
     Route: 065
  2. GLYCOPYRRONIUM BROMIDE [Suspect]
     Active Substance: GLYCOPYRRONIUM
     Indication: PRODUCT USED FOR UNKNOWN INDICATION
     Dosage: 5 MILLIGRAM DAILY;
     Route: 065
  3. MELATONIN [Suspect]
     Active Substance: MELATONIN
     Indication: SLEEP DISORDER
     Dosage: 4 MILLIGRAM DAILY;
     Route: 065
  4. NORMACOL [Suspect]
     Active Substance: KARAYA GUM
     Indication: PRODUCT USED FOR UNKNOWN INDICATION
     Route: 065
  5. CHLORAL HYDRATE [Suspect]
     Active Substance: CHLORAL HYDRATE
     Indication: PRODUCT USED FOR UNKNOWN INDICATION
     Dosage: 1.2G/12ML
     Route: 065
  6. FRISIUM [Suspect]
     Active Substance: CLOBAZAM
     Indication: EPILEPSY
     Dosage: 30 MILLIGRAM DAILY;
     Route: 048
  7. NITROFURANTOIN. [Suspect]
     Active Substance: NITROFURANTOIN
     Indication: PRODUCT USED FOR UNKNOWN INDICATION
     Dosage: 50 MILLIGRAM DAILY; NOCTE?
     Route: 065
  8. NEURONTIN [Suspect]
     Active Substance: GABAPENTIN
     Indication: EPILEPSY
     Dosage: 1500 MILLIGRAM DAILY; AT AGE 5?
     Route: 065
  9. BUCCOLAM [Suspect]
     Active Substance: MIDAZOLAM HYDROCHLORIDE
     Dosage: WHEN NEEDED IF SEIZURE LASTS FOR 5 OR MORE MINUTES
     Route: 065
  10. MOVICOL [Suspect]
     Active Substance: POLYETHYLENE GLYCOL 3350\POTASSIUM CHLORIDE\SODIUM BICARBONATE\SODIUM CHLORIDE
     Dosage: 2-3 SACHETS WHEN NEEDED?
     Route: 065

REACTIONS (4)
  - Seizure [Not Recovered/Not Resolved]
  - Constipation [Not Recovered/Not Resolved]
  - Drooling [Not Recovered/Not Resolved]
  - Drug ineffective [Unknown]
